FAERS Safety Report 5707987-5 (Version None)
Quarter: 2008Q2

REPORT INFORMATION
  Report Type: 
  Country: None (occurrence: None)
  Receive Date: 20080417
  Receipt Date: 20080410
  Transmission Date: 20081010
  Serious: Yes (Life-Threatening, Hospitalization)
  Sender: FDA-Public Use
  Company Number: PHRM2008FR01237

PATIENT
  Age: 64 Year
  Sex: Female

DRUGS (8)
  1. VOLTAREN [Suspect]
     Indication: BACK PAIN
     Dosage: ONCE EVERY 2 OR 3 DAYS
     Route: 003
     Dates: start: 20070915, end: 20080121
  2. VOLTAREN [Suspect]
     Dosage: UNK, BID
     Dates: start: 20080113
  3. LASILIX [Concomitant]
     Dosage: 40 MG DAILY
     Route: 048
  4. CELECTOL [Concomitant]
     Dosage: 200 MG DAILY
  5. ADANCOR [Concomitant]
     Dosage: 10 MG DAILY
  6. VASTAREL ^BIOPHARMA^ [Concomitant]
     Dosage: 35 MG DAILY
     Route: 048
  7. FONZYLANE [Concomitant]
  8. TAREG [Suspect]
     Indication: ISCHAEMIC CARDIOMYOPATHY
     Dosage: 80 MG DAILY
     Route: 048
     Dates: start: 20040101, end: 20080121

REACTIONS (7)
  - ARRHYTHMIA [None]
  - BACK PAIN [None]
  - CARDIAC ARREST [None]
  - DRUG INTERACTION [None]
  - HYPERKALAEMIA [None]
  - RENAL FAILURE ACUTE [None]
  - SHOCK [None]
